FAERS Safety Report 10174931 (Version 1)
Quarter: 2014Q2

REPORT INFORMATION
  Report Type: Report from Study
  Country: US (occurrence: US)
  Receive Date: 20140515
  Receipt Date: 20140515
  Transmission Date: 20141212
  Serious: Yes (Other)
  Sender: FDA-Public Use
  Company Number: US-ASTELLAS-2014US005401

PATIENT
  Sex: 0

DRUGS (3)
  1. ERLOTINIB [Suspect]
     Indication: NON-SMALL CELL LUNG CANCER
     Route: 048
  2. BEVACIZUMAB [Suspect]
     Indication: NON-SMALL CELL LUNG CANCER
     Dosage: 15 MG/KG, 1 IN 3 WEEK
     Route: 058
  3. INVESTIGATIONAL DRUG [Suspect]
     Indication: NON-SMALL CELL LUNG CANCER
     Dosage: 0.8 TO 0.48 MG/KG/W ON DAYS 1,8,AND 15 OF A THREE WEEK CYCLE
     Route: 058

REACTIONS (5)
  - Metabolic acidosis [Unknown]
  - Hypotension [Unknown]
  - Fatigue [Unknown]
  - Dyspnoea [Unknown]
  - Blood creatinine increased [Unknown]
